FAERS Safety Report 19646104 (Version 1)
Quarter: 2021Q3

REPORT INFORMATION
  Report Type: Spontaneous
  Country: US (occurrence: US)
  Receive Date: 20210802
  Receipt Date: 20210802
  Transmission Date: 20211014
  Serious: Yes (Hospitalization)
  Sender: FDA-Public Use
  Company Number: None

PATIENT
  Age: 13 Year
  Sex: Female

DRUGS (5)
  1. NYSTATIN. [Concomitant]
     Active Substance: NYSTATIN
  2. HUMIRA [Suspect]
     Active Substance: ADALIMUMAB
     Indication: CROHN^S DISEASE
     Dosage: ?          OTHER FREQUENCY:EVERY WEEK;?
     Dates: start: 20200416
  3. FOLIC ACID. [Concomitant]
     Active Substance: FOLIC ACID
  4. FLUTICASONE. [Concomitant]
     Active Substance: FLUTICASONE
  5. OMEPRAZOLE. [Concomitant]
     Active Substance: OMEPRAZOLE

REACTIONS (1)
  - Condition aggravated [None]
